FAERS Safety Report 10646100 (Version 1)
Quarter: 2014Q4

REPORT INFORMATION
  Report Type: Report from Study
  Country: US (occurrence: US)
  Receive Date: 20141211
  Receipt Date: 20141211
  Transmission Date: 20150529
  Serious: Yes (Hospitalization)
  Sender: FDA-Public Use
  Company Number: US-ACTELION-A-US2014-109246

PATIENT
  Age: 44 Year
  Sex: Female

DRUGS (6)
  1. HYDROXYUREA. [Concomitant]
     Active Substance: HYDROXYUREA
  2. MULTIVITAMIN [Concomitant]
     Active Substance: VITAMINS
  3. MACITENTAN [Suspect]
     Active Substance: MACITENTAN
     Indication: PULMONARY ARTERIAL HYPERTENSION
     Dosage: 10 MG, QD
     Route: 048
     Dates: start: 20141001
  4. FOLIC ACID. [Concomitant]
     Active Substance: FOLIC ACID
  5. REGLAN [Concomitant]
     Active Substance: METOCLOPRAMIDE HYDROCHLORIDE
  6. LEVOTHYROXINE [Concomitant]
     Active Substance: LEVOTHYROXINE

REACTIONS (3)
  - Endovenous ablation [Recovering/Resolving]
  - Transfusion [Recovering/Resolving]
  - Diuretic therapy [Recovering/Resolving]

NARRATIVE: CASE EVENT DATE: 20141118
